FAERS Safety Report 8074452-2 (Version None)
Quarter: 2012Q1

REPORT INFORMATION
  Report Type: 
  Country: None (occurrence: None)
  Receive Date: 20120126
  Receipt Date: 20120109
  Transmission Date: 20120608
  Serious: Yes (Other)
  Sender: FDA-Public Use
  Company Number: DE-ELI_LILLY_AND_COMPANY-DE201201002438

PATIENT
  Age: 64 Year
  Sex: Female

DRUGS (1)
  1. EFFIENT [Suspect]
     Dosage: UNK, UNKNOWN

REACTIONS (3)
  - DIARRHOEA [None]
  - SYNCOPE [None]
  - GASTROINTESTINAL HAEMORRHAGE [None]
